FAERS Safety Report 9565388 (Version 1)
Quarter: 2013Q3

REPORT INFORMATION
  Report Type: Spontaneous
  Country: PL (occurrence: PL)
  Receive Date: 20130930
  Receipt Date: 20130930
  Transmission Date: 20140515
  Serious: Yes (Life-Threatening)
  Sender: FDA-Public Use
  Company Number: PL-ASTRAZENECA-2013SE71670

PATIENT
  Age: 18741 Day
  Sex: Male
  Weight: 88 kg

DRUGS (1)
  1. MARKAINA HEAVY [Suspect]
     Indication: NERVE BLOCK
     Route: 037
     Dates: start: 20130403, end: 20130403

REACTIONS (3)
  - Hyperhidrosis [Recovered/Resolved]
  - Hypotension [Recovered/Resolved]
  - Bradycardia [Recovered/Resolved]
